FAERS Safety Report 7054399-0 (Version None)
Quarter: 2010Q4

REPORT INFORMATION
  Report Type: 
  Country: None (occurrence: None)
  Receive Date: 20101015
  Receipt Date: 20100930
  Transmission Date: 20110411
  Serious: Yes (Life-Threatening, Other)
  Sender: FDA-Public Use
  Company Number: 2010004255

PATIENT
  Age: 76 Year
  Sex: Male
  Weight: 41.7 kg

DRUGS (7)
  1. ERLOTINIB (ERLOTINIB) (TABLET) (ERLOTINIB) [Suspect]
     Indication: LUNG ADENOCARCINOMA
     Dosage: (150 MG, QD), ORAL
     Route: 048
     Dates: start: 20090409, end: 20090522
  2. AMITRIPTYLINE HCL [Concomitant]
  3. METHYCOBAL (MECOBALAMIN) [Concomitant]
  4. IMIDAPRIL (IMIDAPRIL) [Concomitant]
  5. LANIRAPID (METILDIGOXIN) [Concomitant]
  6. LAFUTIDINE [Concomitant]
  7. SEROQUEL [Concomitant]

REACTIONS (4)
  - INTERSTITIAL LUNG DISEASE [None]
  - LUNG ADENOCARCINOMA STAGE I [None]
  - MALIGNANT NEOPLASM PROGRESSION [None]
  - PNEUMOTHORAX [None]
